FAERS Safety Report 21673181 (Version 2)
Quarter: 2022Q4

REPORT INFORMATION
  Report Type: Spontaneous
  Country: IT (occurrence: IT)
  Receive Date: 20221202
  Receipt Date: 20221206
  Transmission Date: 20230113
  Serious: Yes (Life-Threatening)
  Sender: FDA-Public Use
  Company Number: IT-ZAMBON SWITZERLAND LTD.-2022IT000052

PATIENT

DRUGS (1)
  1. FOSFOMYCIN TROMETHAMINE [Suspect]
     Active Substance: FOSFOMYCIN TROMETHAMINE
     Indication: Cystitis
     Dosage: 3 G, SINGLE
     Route: 048
     Dates: start: 20201101, end: 20201101

REACTIONS (2)
  - Loss of consciousness [Recovered/Resolved]
  - Urticaria [Recovered/Resolved]

NARRATIVE: CASE EVENT DATE: 20201101
